FAERS Safety Report 10657092 (Version 1)
Quarter: 2014Q4

REPORT INFORMATION
  Report Type: Spontaneous
  Country: DE (occurrence: None)
  Receive Date: 20141215
  Receipt Date: 20141215
  Transmission Date: 20150529
  Serious: Yes (Hospitalization)
  Sender: FDA-Public Use
  Company Number: DE2014026302

PATIENT
  Age: 33 Year
  Sex: Female

DRUGS (3)
  1. SALBUTAMOL DOSIERAEROSOL (SALBUTAMOL) [Concomitant]
  2. PAROXETIN (PAROXETIN HYDROCHLORIDE) UNKNOWN [Suspect]
     Active Substance: PAROXETINE HYDROCHLORIDE
     Indication: GENERALISED ANXIETY DISORDER
     Route: 048
     Dates: start: 201105, end: 201409
  3. SYMBICORT TURBOHALER (BUDESONIDE + FORMOTEROL FURMARATE) [Concomitant]

REACTIONS (2)
  - Exposure during pregnancy [None]
  - Anencephaly [None]

NARRATIVE: CASE EVENT DATE: 20141028
